FAERS Safety Report 10180327 (Version 1)
Quarter: 2014Q2

REPORT INFORMATION
  Report Type: Report from Study
  Country: CA (occurrence: CA)
  Receive Date: 20140519
  Receipt Date: 20140519
  Transmission Date: 20141212
  Serious: Yes (Hospitalization, Other)
  Sender: FDA-Public Use
  Company Number: CA-BAYER-2014-069569

PATIENT
  Age: 57 Year
  Sex: Male

DRUGS (8)
  1. STIVARGA [Suspect]
     Indication: COLORECTAL CANCER METASTATIC
     Dosage: 160 MG, OD
     Route: 048
     Dates: start: 20140404, end: 201404
  2. ASA [Concomitant]
     Dosage: DAILY DOSE 80 MG
  3. ROSUVASTATIN [Concomitant]
     Dosage: DAILY DOSE 40 MG
  4. OXYBUTYNIN [Concomitant]
     Dosage: DAILY DOSE 5 MG
  5. IRON [Concomitant]
  6. OXAZEPAM [Concomitant]
     Dosage: 15 MG, HS
  7. DOCUSATE SODIUM [Concomitant]
  8. POTASSIUM [Concomitant]

REACTIONS (4)
  - Renal injury [None]
  - Asthenia [None]
  - Impaired self-care [None]
  - Transfusion [None]
